FAERS Safety Report 9463823 (Version 3)
Quarter: 2013Q3

REPORT INFORMATION
  Report Type: Report from Study
  Country: US (occurrence: US)
  Receive Date: 20130819
  Receipt Date: 20130916
  Transmission Date: 20140515
  Serious: Yes (Hospitalization, Disabling, Other)
  Sender: FDA-Public Use
  Company Number: US-ROCHE-1235268

PATIENT
  Age: 77 Year
  Sex: Female

DRUGS (10)
  1. TARCEVA [Suspect]
     Indication: BREAST CANCER
     Route: 048
     Dates: start: 20120309, end: 20130226
  2. TARCEVA [Suspect]
     Indication: HYPOGAMMAGLOBULINAEMIA
     Dosage: 5 DAYS A WEEK
     Route: 048
     Dates: start: 20130301
  3. RITUXAN [Suspect]
     Indication: CHRONIC LYMPHOCYTIC LEUKAEMIA
     Dosage: 6 CYCLES CFR
     Route: 042
     Dates: start: 20090808, end: 20091123
  4. FLUDARABINE [Suspect]
     Indication: CHRONIC LYMPHOCYTIC LEUKAEMIA
     Dosage: 6 CYCLES CFR
     Route: 065
  5. CYTOXAN [Suspect]
     Indication: CHRONIC LYMPHOCYTIC LEUKAEMIA
     Dosage: 6 CYCLES CFR
     Route: 065
  6. FEMARA [Concomitant]
     Route: 065
     Dates: start: 20120309
  7. ARIMIDEX [Concomitant]
  8. GABAPENTIN [Concomitant]
     Indication: NEUROPATHY PERIPHERAL
  9. CYMBALTA [Concomitant]
  10. VICODIN [Concomitant]

REACTIONS (16)
  - Epistaxis [Unknown]
  - Deafness unilateral [Unknown]
  - Squamous cell carcinoma [Recovered/Resolved with Sequelae]
  - Fatigue [Not Recovered/Not Resolved]
  - Hypoaesthesia [Recovering/Resolving]
  - Appetite disorder [Recovered/Resolved]
  - Skin exfoliation [Recovered/Resolved with Sequelae]
  - Pyrexia [Unknown]
  - Thrombocytopenia [Unknown]
  - Skin exfoliation [Unknown]
  - Lymphoedema [Unknown]
  - Neuropathy peripheral [Unknown]
  - Hypoaesthesia [Unknown]
  - Hypoacusis [Unknown]
  - Cellulitis [Recovered/Resolved]
  - Breast cancer metastatic [Not Recovered/Not Resolved]
